FAERS Safety Report 9361230 (Version 1)
Quarter: 2013Q2

REPORT INFORMATION
  Report Type: Spontaneous
  Country: BR (occurrence: BR)
  Receive Date: 20130621
  Receipt Date: 20130621
  Transmission Date: 20140414
  Serious: Yes (Other)
  Sender: FDA-Public Use
  Company Number: BR-BRISTOL-MYERS SQUIBB COMPANY-19022458

PATIENT
  Age: 67 Year
  Sex: Female

DRUGS (3)
  1. GLIFAGE [Suspect]
     Indication: DIABETES MELLITUS
     Dosage: 1DF=500-UNITS NOS?TABS
     Dates: start: 20130604, end: 20130611
  2. LOSARTAN [Concomitant]
  3. ATENOLOL [Concomitant]

REACTIONS (7)
  - Urinary retention [Not Recovered/Not Resolved]
  - Bedridden [Not Recovered/Not Resolved]
  - Malaise [Not Recovered/Not Resolved]
  - Pain in extremity [Not Recovered/Not Resolved]
  - Dizziness [Not Recovered/Not Resolved]
  - Fatigue [Not Recovered/Not Resolved]
  - Headache [Not Recovered/Not Resolved]
